FAERS Safety Report 24143817 (Version 1)
Quarter: 2024Q3

REPORT INFORMATION
  Report Type: Spontaneous
  Country: US (occurrence: US)
  Receive Date: 20240727
  Receipt Date: 20240727
  Transmission Date: 20241016
  Serious: Yes (Hospitalization, Other)
  Sender: TEVA
  Company Number: US-TEVA-VS-3222790

PATIENT
  Age: 68 Year
  Sex: Female

DRUGS (3)
  1. LEVOTHYROXINE [Suspect]
     Active Substance: LEVOTHYROXINE\LEVOTHYROXINE SODIUM
     Indication: Product used for unknown indication
     Route: 065
  2. LENVIMA [Suspect]
     Active Substance: LENVATINIB
     Indication: Endometrial cancer
     Route: 065
     Dates: start: 20231127
  3. KEYTRUDA [Suspect]
     Active Substance: PEMBROLIZUMAB
     Indication: Endometrial cancer
     Route: 065
     Dates: end: 202405

REACTIONS (9)
  - Pneumonitis [Recovering/Resolving]
  - Dry mouth [Unknown]
  - Dyspnoea [Unknown]
  - Thyroid disorder [Unknown]
  - Blood pressure increased [Unknown]
  - Asthma [Unknown]
  - Tongue discomfort [Unknown]
  - Dysphonia [Unknown]
  - Neuropathy peripheral [Recovering/Resolving]

NARRATIVE: CASE EVENT DATE: 20240101
